FAERS Safety Report 5089767-X (Version None)
Quarter: 2006Q3

REPORT INFORMATION
  Report Type: 
  Country: None (occurrence: None)
  Receive Date: 20060731
  Receipt Date: 20060410
  Transmission Date: 20061208
  Serious: No
  Sender: FDA-Public Use
  Company Number: US200604001716

PATIENT
  Sex: Female

DRUGS (2)
  1. FORTEO [Suspect]
     Indication: OSTEOPOROSIS
     Dates: start: 20060201, end: 20060329
  2. FORTEO [Concomitant]

REACTIONS (7)
  - BOWEL MOVEMENT IRREGULARITY [None]
  - CONSTIPATION [None]
  - DEHYDRATION [None]
  - MALAISE [None]
  - PNEUMONIA [None]
  - PYREXIA [None]
  - VOMITING [None]
